FAERS Safety Report 6566437-X (Version None)
Quarter: 2010Q1

REPORT INFORMATION
  Report Type: 
  Country: None (occurrence: None)
  Receive Date: 20100202
  Receipt Date: 20100120
  Transmission Date: 20100710
  Serious: Yes (Other)
  Sender: FDA-Public Use
  Company Number: PHHY2010US03639

PATIENT
  Sex: Male

DRUGS (1)
  1. GLEEVEC [Suspect]
     Indication: CHRONIC MYELOID LEUKAEMIA (IN REMISSION)
     Dosage: 300 MG/DAY
     Route: 048
     Dates: start: 20030101

REACTIONS (1)
  - PROSTATE CANCER [None]
